FAERS Safety Report 8959876 (Version 2)
Quarter: 2013Q1

REPORT INFORMATION
  Report Type: Spontaneous
  Country: US (occurrence: US)
  Receive Date: 20121212
  Receipt Date: 20130329
  Transmission Date: 20140127
  Serious: Yes (Hospitalization)
  Sender: FDA-Public Use
  Company Number: US-MERCK-1212USA002869

PATIENT
  Sex: Male

DRUGS (5)
  1. DECADRON [Suspect]
     Indication: PAIN IN EXTREMITY
     Dosage: UNK
     Route: 014
     Dates: start: 20060915, end: 20061005
  2. DECADRON [Suspect]
     Indication: MOVEMENT DISORDER
  3. TRAMADOL HYDROCHLORIDE [Concomitant]
  4. MORPHINE SULFATE [Concomitant]
  5. PREDNISONE [Concomitant]

REACTIONS (4)
  - Anger [Recovering/Resolving]
  - Hallucination [Recovering/Resolving]
  - Alopecia [Recovering/Resolving]
  - Expired drug administered [Unknown]
